FAERS Safety Report 10548097 (Version 1)
Quarter: 2014Q4

REPORT INFORMATION
  Report Type: Spontaneous
  Country: US (occurrence: None)
  Receive Date: 20141027
  Receipt Date: 20141027
  Transmission Date: 20150529
  Serious: Yes (Disabling)
  Sender: FDA-Public Use
  Company Number: None

PATIENT
  Age: 57 Year
  Sex: Female
  Weight: 88.91 kg

DRUGS (1)
  1. DULOXETINE 60MG LUPIN [Suspect]
     Active Substance: DULOXETINE
     Indication: DEPRESSION
     Dosage: 1 X DAILY ONCE DAILY TAKEN BY MOUTH
     Route: 048
     Dates: start: 20140201, end: 20141025

REACTIONS (18)
  - Fatigue [None]
  - Abdominal discomfort [None]
  - Headache [None]
  - Dizziness [None]
  - Pain [None]
  - Product substitution issue [None]
  - Stress [None]
  - Activities of daily living impaired [None]
  - Insomnia [None]
  - Asthenia [None]
  - Influenza like illness [None]
  - Anxiety [None]
  - Educational problem [None]
  - Impaired work ability [None]
  - Depression [None]
  - Feeling abnormal [None]
  - Migraine [None]
  - Agitation [None]
